FAERS Safety Report 6286655-8 (Version None)
Quarter: 2009Q3

REPORT INFORMATION
  Report Type: 
  Country: None (occurrence: None)
  Receive Date: 20090728
  Receipt Date: 20090716
  Transmission Date: 20100115
  Serious: Yes (Other)
  Sender: FDA-Public Use
  Company Number: PHEH2008US01234

PATIENT
  Sex: Female

DRUGS (39)
  1. ZOMETA [Suspect]
     Dosage: 4 MG, QMO
     Route: 042
     Dates: start: 20070506
  2. TAXOTERE [Concomitant]
     Dosage: UNK
  3. OXYCONTIN [Concomitant]
     Dosage: 400 MG, Q8H
  4. OXYCODONE [Concomitant]
     Dosage: UNK
  5. ARIMIDEX [Concomitant]
  6. RADIATION [Concomitant]
  7. CHEMOTHERAPEUTICS NOS [Concomitant]
  8. MULTI-VITAMINS [Concomitant]
  9. ASPIRIN [Concomitant]
  10. PAXIL [Concomitant]
     Dosage: 20 MG, QD
  11. CLONAZEPAM [Concomitant]
     Dosage: 0.5 MG, BID
  12. HYDROCHLOROTHIAZIDE [Concomitant]
  13. AROMASIN [Concomitant]
     Dosage: 250 MG, UNK
  14. PAROXETINE HCL [Concomitant]
  15. LYRICA [Concomitant]
  16. DIAZEPAM [Concomitant]
  17. CEFUROXIME [Concomitant]
  18. NYSTATIN [Concomitant]
  19. FLUCONAZOLE [Concomitant]
  20. PHENAZOPYRIDINE HCL TAB [Concomitant]
  21. NITROFURANTOIN [Concomitant]
  22. AVELOX [Concomitant]
  23. SULFAMETHOXYPYRAZINE/TRIMETHOPRIM [Concomitant]
  24. AMOXICILINA + CLAVULANICO [Concomitant]
  25. CHLORHEXIDINE GLUCONATE [Concomitant]
     Route: 048
  26. LIDODERM [Concomitant]
  27. NEULASTA [Concomitant]
  28. ERYTHROMYCIN [Concomitant]
  29. CEPHALEXIN [Concomitant]
  30. CLINDAMYCIN [Concomitant]
  31. LEVAQUIN [Concomitant]
  32. VALTREX [Concomitant]
  33. VFEND [Concomitant]
  34. ZYVOX [Concomitant]
  35. PENICILLIN ^GRUNENTHAL^ [Concomitant]
  36. VESICARE [Concomitant]
  37. MAG-OX [Concomitant]
  38. PANTOPRAZOLE SODIUM [Concomitant]
  39. DEXAMETHASONE [Concomitant]

REACTIONS (27)
  - ABASIA [None]
  - ANHEDONIA [None]
  - ANXIETY [None]
  - BACK PAIN [None]
  - BONE MARROW FAILURE [None]
  - CEREBROVASCULAR ACCIDENT [None]
  - COMPRESSION FRACTURE [None]
  - DEPRESSION [None]
  - DISABILITY [None]
  - FRACTURE [None]
  - HIP FRACTURE [None]
  - HYDROCEPHALUS [None]
  - ILIUM FRACTURE [None]
  - INJURY [None]
  - INTERVERTEBRAL DISC PROTRUSION [None]
  - ISCHAEMIA [None]
  - METASTASES TO SPINE [None]
  - OSTEOARTHRITIS [None]
  - OSTEONECROSIS [None]
  - OSTEOPOROSIS [None]
  - PAIN [None]
  - PAIN IN JAW [None]
  - POLYNEUROPATHY [None]
  - SPINAL DECOMPRESSION [None]
  - SPINAL FRACTURE [None]
  - SYNOVIAL CYST [None]
  - URINARY TRACT INFECTION [None]
